FAERS Safety Report 8308655-6 (Version None)
Quarter: 2012Q2

REPORT INFORMATION
  Report Type: 
  Country: None (occurrence: None)
  Receive Date: 20120420
  Receipt Date: 20120412
  Transmission Date: 20120825
  Serious: Yes (Hospitalization)
  Sender: FDA-Public Use
  Company Number: 2011SP028213

PATIENT
  Age: 57 Year
  Sex: Male
  Weight: 65 kg

DRUGS (7)
  1. NEORECORMON [Concomitant]
  2. DIHYDROERGOTAMINE MESYLATE [Concomitant]
  3. VITAMIN B-12 [Concomitant]
  4. PEG-INTRON [Suspect]
     Indication: HEPATITIS C
     Dosage: 50 MCG, QW, SC
     Route: 058
     Dates: start: 20100126, end: 20110501
  5. RIBAVIRIN [Suspect]
     Indication: HEPATITIS C
     Dosage: 1000 MG, QD, PO
     Route: 048
     Dates: start: 20100126, end: 20110601
  6. PROPRANOLOL [Concomitant]
  7. OMEPRAZOLE [Concomitant]

REACTIONS (14)
  - HYPERHIDROSIS [None]
  - DECUBITUS ULCER [None]
  - PALLOR [None]
  - LUNG DISORDER [None]
  - ABDOMINAL PAIN UPPER [None]
  - CHOLANGITIS [None]
  - RESPIRATORY DISTRESS [None]
  - HEPATOMEGALY [None]
  - PLATELET COUNT DECREASED [None]
  - ANAEMIA MACROCYTIC [None]
  - HYPOXIA [None]
  - BLOOD PRESSURE DECREASED [None]
  - OEDEMA PERIPHERAL [None]
  - PROTHROMBIN LEVEL DECREASED [None]
